FAERS Safety Report 8303475-0 (Version None)
Quarter: 2012Q2

REPORT INFORMATION
  Report Type: 
  Country: None (occurrence: None)
  Receive Date: 20120423
  Receipt Date: 20120417
  Transmission Date: 20120825
  Serious: No
  Sender: FDA-Public Use
  Company Number: US-PFIZER INC-2012095533

PATIENT
  Sex: Female
  Weight: 99.773 kg

DRUGS (2)
  1. WARFARIN SODIUM [Interacting]
     Indication: ATRIAL FIBRILLATION
     Dosage: 5 MG, DAILY
     Dates: start: 20110901
  2. FLUCONAZOLE [Suspect]
     Indication: FUNGAL INFECTION
     Dosage: 150 MG, UNK
     Route: 048
     Dates: start: 20120401

REACTIONS (2)
  - PROTHROMBIN LEVEL INCREASED [None]
  - DRUG INTERACTION [None]
